FAERS Safety Report 16828777 (Version 2)
Quarter: 2019Q4

REPORT INFORMATION
  Report Type: Report from Study
  Country: US (occurrence: US)
  Receive Date: 20190919
  Receipt Date: 20191018
  Transmission Date: 20200122
  Serious: Yes (Hospitalization)
  Sender: FDA-Public Use
  Company Number: US-JNJFOC-20190914900

PATIENT
  Age: 51 Year
  Sex: Male
  Weight: 80 kg

DRUGS (3)
  1. SILTUXIMAB [Suspect]
     Active Substance: SILTUXIMAB
     Indication: CASTLEMAN^S DISEASE
     Route: 042
     Dates: start: 20180601
  2. SILTUXIMAB [Suspect]
     Active Substance: SILTUXIMAB
     Route: 042
     Dates: start: 20180622
  3. ALLOPURINOL. [Suspect]
     Active Substance: ALLOPURINOL
     Route: 065

REACTIONS (2)
  - Drug reaction with eosinophilia and systemic symptoms [Not Recovered/Not Resolved]
  - Rash [Recovered/Resolved]

NARRATIVE: CASE EVENT DATE: 20180601
